FAERS Safety Report 6337955-4 (Version None)
Quarter: 2009Q3

REPORT INFORMATION
  Report Type: 
  Country: None (occurrence: None)
  Receive Date: 20090902
  Receipt Date: 20090821
  Transmission Date: 20100115
  Serious: Yes (Other)
  Sender: FDA-Public Use
  Company Number: CL-PFIZER INC-2009259130

PATIENT

DRUGS (3)
  1. ECALTA [Suspect]
     Indication: SYSTEMIC CANDIDA
     Dosage: 100 MG, 1X/DAY
     Dates: start: 20090801, end: 20090820
  2. METRONIDAZOLE [Concomitant]
     Dates: end: 20090818
  3. CEFTRIAXONE [Concomitant]
     Dates: end: 20090818

REACTIONS (1)
  - ANAPHYLACTIC SHOCK [None]
